FAERS Safety Report 20196066 (Version 1)
Quarter: 2021Q4

REPORT INFORMATION
  Report Type: Spontaneous
  Country: IT (occurrence: IT)
  Receive Date: 20211216
  Receipt Date: 20211216
  Transmission Date: 20220304
  Serious: Yes (Other)
  Sender: FDA-Public Use
  Company Number: IT-NOVARTISPH-NVSC2021IT287955

PATIENT
  Sex: Male

DRUGS (5)
  1. FINGOLIMOD [Suspect]
     Active Substance: FINGOLIMOD
     Indication: Multiple sclerosis
     Dosage: UNK
     Route: 065
     Dates: start: 2012, end: 201905
  2. FINGOLIMOD [Suspect]
     Active Substance: FINGOLIMOD
     Indication: Secondary progressive multiple sclerosis
  3. SIPONIMOD [Suspect]
     Active Substance: SIPONIMOD
     Indication: Secondary progressive multiple sclerosis
     Dosage: 1 MG, BID (EVERY OTHER DAY)
     Route: 065
     Dates: start: 2020
  4. SIPONIMOD [Suspect]
     Active Substance: SIPONIMOD
     Dosage: 2 MG, QD
     Route: 065
     Dates: start: 202005
  5. SIPONIMOD [Suspect]
     Active Substance: SIPONIMOD
     Dosage: 1 MG, QD
     Route: 065
     Dates: start: 2020

REACTIONS (1)
  - Lymphopenia [Recovering/Resolving]
